FAERS Safety Report 4591697-4 (Version None)
Quarter: 2005Q1

REPORT INFORMATION
  Report Type: 
  Country: None (occurrence: None)
  Receive Date: 20050222
  Receipt Date: 20050206
  Transmission Date: 20050727
  Serious: Yes (Death, Hospitalization)
  Sender: FDA-Public Use
  Company Number: 2005025582

PATIENT
  Age: 24 Year
  Sex: Female

DRUGS (4)
  1. ZITHROMAX [Suspect]
     Indication: RESPIRATORY TRACT INFECTION
     Dosage: 500 MG (500 MG, 1), INTRAVENOUS
     Route: 042
     Dates: start: 20050122, end: 20050122
  2. CEFTRIAXONE SODUM (CEFTRIAXONE SODIUM) [Suspect]
     Indication: ILL-DEFINED DISORDER
     Dosage: 2 GRAM (1), INTRAVENOUS
     Route: 042
     Dates: start: 20050122, end: 20050122
  3. CEFACLOR [Concomitant]
  4. CIPROFLOXACIN [Concomitant]

REACTIONS (6)
  - ACUTE RESPIRATORY DISTRESS SYNDROME [None]
  - ANAPHYLACTIC SHOCK [None]
  - ARRHYTHMIA [None]
  - CARDIO-RESPIRATORY ARREST [None]
  - MEDICATION ERROR [None]
  - TACHYCARDIA [None]
